FAERS Safety Report 5018061-8 (Version None)
Quarter: 2006Q2

REPORT INFORMATION
  Report Type: 
  Country: None (occurrence: None)
  Receive Date: 20060530
  Receipt Date: 20060516
  Transmission Date: 20061013
  Serious: Yes (Other)
  Sender: FDA-Public Use
  Company Number: B0425189A

PATIENT
  Age: 45 Year
  Sex: Female

DRUGS (6)
  1. RETROVIR [Suspect]
     Indication: HIV INFECTION
     Dates: end: 20020101
  2. ZALCITABINE (ZALCITABINE) [Suspect]
     Indication: HIV INFECTION
     Dates: end: 20020101
  3. SAQUINAVIR (SAQUINAVIR) [Suspect]
     Indication: HIV INFECTION
     Dates: end: 20020101
  4. STAVUDINE [Suspect]
     Indication: HIV INFECTION
     Dates: start: 20020101, end: 20041027
  5. DIDANOSINE [Suspect]
     Indication: HIV INFECTION
     Dates: start: 20020101, end: 20041027
  6. LOPINAVIR + RITONAVIR (LOPINAVIR + RITONAVIR) [Suspect]
     Indication: HIV INFECTION
     Dates: start: 20020101, end: 20041027

REACTIONS (14)
  - ANOREXIA [None]
  - ANXIETY DISORDER [None]
  - BLOOD HIV RNA INCREASED [None]
  - CD4 LYMPHOCYTES DECREASED [None]
  - DEPRESSION [None]
  - FATIGUE [None]
  - LOSS OF CONSCIOUSNESS [None]
  - LYMPHOCYTE COUNT DECREASED [None]
  - MALAISE [None]
  - MYALGIA [None]
  - NYSTAGMUS [None]
  - PYREXIA [None]
  - RETROVIRAL INFECTION [None]
  - VIRAL INFECTION [None]
